FAERS Safety Report 7852851-9 (Version None)
Quarter: 2011Q4

REPORT INFORMATION
  Report Type: 
  Country: None (occurrence: None)
  Receive Date: 20111026
  Receipt Date: 20100208
  Transmission Date: 20120403
  Serious: No
  Sender: FDA-Public Use
  Company Number: US-BAYER-201016325NA

PATIENT
  Sex: Male

DRUGS (3)
  1. HYZAAR [Concomitant]
     Indication: BLOOD PRESSURE ABNORMAL
  2. LEVITRA [Suspect]
     Indication: PRODUCT USED FOR UNKNOWN INDICATION
     Dosage: 20 MG, BIW
     Dates: start: 20090501, end: 20090507
  3. TENORMIN [Concomitant]
     Indication: BLOOD PRESSURE ABNORMAL

REACTIONS (3)
  - DRUG INEFFECTIVE [None]
  - BLOOD PRESSURE DECREASED [None]
  - FLUSHING [None]
